FAERS Safety Report 7058461-8 (Version None)
Quarter: 2010Q4

REPORT INFORMATION
  Report Type: 
  Country: None (occurrence: None)
  Receive Date: 20101022
  Receipt Date: 20101014
  Transmission Date: 20110411
  Serious: Yes (Other)
  Sender: FDA-Public Use
  Company Number: GXKR2010HR11657

PATIENT
  Sex: Male

DRUGS (5)
  1. ELMOGAN (NGX) [Suspect]
     Indication: HYPERTRIGLYCERIDAEMIA
     Dosage: 450 MG, BID
     Route: 048
     Dates: start: 20100430, end: 20100815
  2. LETIZEN [Concomitant]
     Route: 065
  3. SYMBICORT [Concomitant]
     Route: 065
  4. CAFFETIN [Concomitant]
     Route: 065
  5. NASONEX [Concomitant]
     Route: 065

REACTIONS (3)
  - DYSPNOEA [None]
  - FATIGUE [None]
  - TACHYCARDIA [None]
